FAERS Safety Report 5610173-0 (Version None)
Quarter: 2008Q1

REPORT INFORMATION
  Report Type: 
  Country: None (occurrence: None)
  Receive Date: 20080131
  Receipt Date: 20080121
  Transmission Date: 20080703
  Serious: Yes (Other)
  Sender: FDA-Public Use
  Company Number: US-BAYER-200714297BCC

PATIENT
  Age: 78 Year
  Sex: Female

DRUGS (4)
  1. ONE A DAY VITAMINS [Suspect]
     Indication: VITAMIN SUPPLEMENTATION
     Route: 048
     Dates: start: 19510101
  2. ASPIRIN [Suspect]
     Indication: DRUG USE FOR UNKNOWN INDICATION
     Route: 048
     Dates: start: 19950101
  3. ASPIRIN [Suspect]
     Route: 048
  4. HERBAL SUPPLEMENT [Suspect]
     Indication: DRUG USE FOR UNKNOWN INDICATION

REACTIONS (2)
  - THROAT TIGHTNESS [None]
  - VISUAL DISTURBANCE [None]
